FAERS Safety Report 9455616 (Version 1)
Quarter: 2013Q3

REPORT INFORMATION
  Report Type: Spontaneous
  Country: GB (occurrence: None)
  Receive Date: 20130808
  Receipt Date: 20130808
  Transmission Date: 20140515
  Serious: Yes (Death, Other)
  Sender: FDA-Public Use
  Company Number: GER/UKI/13/0033789

PATIENT
  Age: 68 Year
  Sex: Female

DRUGS (2)
  1. SERTRALINE (SERTRALINE) [Suspect]
     Indication: PRODUCT USED FOR UNKNOWN INDICATION
     Dates: start: 20130325
  2. ANTIHYPERTENSIVE NOS (ANTIHYPERTENSIVES) [Concomitant]

REACTIONS (5)
  - Depression [None]
  - Agitation [None]
  - Insomnia [None]
  - Suicidal ideation [None]
  - Completed suicide [None]
